FAERS Safety Report 25569801 (Version 1)
Quarter: 2025Q3

REPORT INFORMATION
  Report Type: Spontaneous
  Country: US (occurrence: US)
  Receive Date: 20250717
  Receipt Date: 20250717
  Transmission Date: 20251021
  Serious: Yes (Hospitalization)
  Sender: MACLEODS
  Company Number: US-MLMSERVICE-20250627-PI557706-00217-1

PATIENT

DRUGS (9)
  1. METFORMIN [Suspect]
     Active Substance: METFORMIN HYDROCHLORIDE
     Indication: Type 2 diabetes mellitus
     Dosage: IN THE MORNING
     Route: 065
  2. METFORMIN [Suspect]
     Active Substance: METFORMIN HYDROCHLORIDE
     Dosage: IN THE EVENING
     Route: 065
  3. SITAGLIPTIN [Concomitant]
     Active Substance: SITAGLIPTIN
     Indication: Product used for unknown indication
     Route: 065
  4. AMLODIPINE [Concomitant]
     Active Substance: AMLODIPINE BESYLATE
     Indication: Product used for unknown indication
     Route: 065
  5. LISINOPRIL [Concomitant]
     Active Substance: LISINOPRIL
     Indication: Product used for unknown indication
     Route: 065
  6. METOPROLOL SUCCINATE [Concomitant]
     Active Substance: METOPROLOL SUCCINATE
     Indication: Product used for unknown indication
     Route: 065
  7. DICLOFENAC [Concomitant]
     Active Substance: DICLOFENAC
     Indication: Product used for unknown indication
     Route: 061
  8. OMEPRAZOLE [Concomitant]
     Active Substance: OMEPRAZOLE
     Indication: Product used for unknown indication
     Route: 061
  9. SIMVASTATIN [Concomitant]
     Active Substance: SIMVASTATIN
     Indication: Product used for unknown indication
     Route: 061

REACTIONS (4)
  - Hypomagnesaemia [Recovered/Resolved]
  - Hypocalcaemia [Recovered/Resolved]
  - Vitamin D deficiency [Recovered/Resolved]
  - Blood parathyroid hormone decreased [Recovered/Resolved]
